FAERS Safety Report 25927392 (Version 2)
Quarter: 2025Q4

REPORT INFORMATION
  Report Type: Spontaneous
  Country: JP (occurrence: JP)
  Receive Date: 20251015
  Receipt Date: 20251015
  Transmission Date: 20260117
  Serious: Yes (Other)
  Sender: NOVARTIS
  Company Number: JP-002147023-NVSJ2025JP008639

PATIENT
  Age: 61 Year
  Sex: Female

DRUGS (2)
  1. TYKERB [Suspect]
     Active Substance: LAPATINIB DITOSYLATE
     Indication: Invasive ductal breast carcinoma
     Dosage: 1250 MG, QD
     Route: 048
     Dates: start: 201503, end: 202002
  2. XELODA [Suspect]
     Active Substance: CAPECITABINE
     Indication: Invasive ductal breast carcinoma
     Dosage: UNK UNK, BID
     Route: 048
     Dates: start: 201503, end: 202003

REACTIONS (3)
  - Metastases to central nervous system [Recovered/Resolved]
  - Malignant neoplasm progression [Recovered/Resolved]
  - Liver function test increased [Recovered/Resolved]

NARRATIVE: CASE EVENT DATE: 20200201
